FAERS Safety Report 8608401-2 (Version None)
Quarter: 2012Q3

REPORT INFORMATION
  Report Type: 
  Country: None (occurrence: None)
  Receive Date: 20120821
  Receipt Date: 20120808
  Transmission Date: 20120928
  Serious: Yes (Hospitalization)
  Sender: FDA-Public Use
  Company Number: BR-ELI_LILLY_AND_COMPANY-BR201204006940

PATIENT
  Sex: Male

DRUGS (5)
  1. METFORMIN HYDROCHLORIDE [Concomitant]
     Dosage: UNK, UNKNOWN
     Route: 065
     Dates: start: 20100101, end: 20100101
  2. HUMALOG MIX 50/50 [Suspect]
     Dosage: UNK, UNKNOWN
     Route: 058
     Dates: start: 20090101, end: 20120724
  3. ACARBOSE [Concomitant]
     Dosage: UNK, UNKNOWN
     Route: 065
  4. HUMALOG MIX 50/50 [Suspect]
     Indication: TYPE 2 DIABETES MELLITUS
     Dosage: UNK, UNKNOWN
     Route: 058
     Dates: start: 20090101, end: 20120724
  5. GLIMEPIRIDE [Concomitant]
     Dosage: UNK, UNKNOWN
     Route: 065

REACTIONS (3)
  - BLOOD SODIUM DECREASED [None]
  - WEIGHT DECREASED [None]
  - HOSPITALISATION [None]
